FAERS Safety Report 6443655-2 (Version None)
Quarter: 2009Q4

REPORT INFORMATION
  Report Type: 
  Country: None (occurrence: None)
  Receive Date: 20091117
  Receipt Date: 20091104
  Transmission Date: 20100525
  Serious: Yes (Hospitalization, Other)
  Sender: FDA-Public Use
  Company Number: PHHY2009CA30890

PATIENT
  Sex: Male

DRUGS (5)
  1. DIOVAN [Suspect]
     Dosage: 80 MG
     Route: 048
     Dates: start: 20090616
  2. DIOVAN [Suspect]
     Dosage: 160 MG
     Route: 048
  3. SYNTHROID [Concomitant]
  4. METOPROLOL [Concomitant]
  5. PLAVIX [Concomitant]

REACTIONS (11)
  - BLOOD PRESSURE INCREASED [None]
  - BREAST PAIN [None]
  - DIZZINESS [None]
  - DRUG INEFFECTIVE [None]
  - HEADACHE [None]
  - HEART RATE DECREASED [None]
  - MUSCULOSKELETAL PAIN [None]
  - PAIN IN EXTREMITY [None]
  - PARAESTHESIA [None]
  - STENT PLACEMENT [None]
  - VISION BLURRED [None]
